FAERS Safety Report 7138902-8 (Version None)
Quarter: 2010Q4

REPORT INFORMATION
  Report Type: 
  Country: None (occurrence: None)
  Receive Date: 20101206
  Receipt Date: 20100421
  Transmission Date: 20110411
  Serious: No
  Sender: FDA-Public Use
  Company Number: US-ABBOTT-10P-163-0628013-00

PATIENT
  Sex: Male
  Weight: 12.712 kg

DRUGS (1)
  1. CEFDINIR [Suspect]
     Indication: PNEUMONIA
     Dates: start: 20100202, end: 20100212

REACTIONS (1)
  - URTICARIA [None]
